FAERS Safety Report 9254871 (Version 1)
Quarter: 2013Q2

REPORT INFORMATION
  Report Type: Spontaneous
  Country: FR (occurrence: None)
  Receive Date: 20130422
  Receipt Date: 20130422
  Transmission Date: 20140414
  Serious: Yes (Hospitalization)
  Sender: FDA-Public Use
  Company Number: DSM-2013-00396

PATIENT
  Age: 81 Year
  Sex: Female

DRUGS (1)
  1. COOLMETEC (HYDROCHLOROTHIAZIDE, OLMESARTAN MEDOXOMIL)(TABLET)(HYDROCHLOROTHIAZIDE, OLMESARTAN MEDOXOMIL) [Suspect]
     Indication: HYPERTENSION
     Route: 048
     Dates: start: 20130104, end: 20130114

REACTIONS (7)
  - Hyponatraemia [None]
  - Hypokalaemia [None]
  - Vertigo [None]
  - Fall [None]
  - Tachypnoea [None]
  - Blood creatine phosphokinase increased [None]
  - Pulmonary artery dilatation [None]
